FAERS Safety Report 5085993-4 (Version None)
Quarter: 2006Q3

REPORT INFORMATION
  Report Type: 
  Country: None (occurrence: None)
  Receive Date: 20060817
  Receipt Date: 20060801
  Transmission Date: 20061208
  Serious: Yes (Hospitalization, Other)
  Sender: FDA-Public Use
  Company Number: 060626-0000568

PATIENT
  Age: 35 Year
  Sex: Male

DRUGS (12)
  1. TRANXENE [Suspect]
     Indication: DRUG USE FOR UNKNOWN INDICATION
     Dates: end: 20060512
  2. DEPAKENE [Suspect]
     Indication: EPILEPSY
     Dosage: 500 MG; QD; PO
     Route: 048
     Dates: start: 20030101, end: 20060512
  3. METRONIDAZOLE [Suspect]
     Indication: FEBRILE INFECTION
     Dosage: 500 MG; TID; PO
     Route: 048
     Dates: start: 20060507, end: 20060512
  4. ROXITHROMYCIN (ROXITHROMYCIN) [Suspect]
     Indication: FEBRILE INFECTION
     Dosage: 150 MG/ BID; PO
     Route: 048
     Dates: start: 20060507, end: 20060512
  5. HEPARIN [Suspect]
     Indication: DRUG USE FOR UNKNOWN INDICATION
     Dosage: 5000 IU; QD; SC
     Route: 058
     Dates: start: 20060101, end: 20060512
  6. SERTRALINE [Suspect]
     Indication: DEPRESSION
     Dosage: 50 MG; BID; PO
     Route: 048
     Dates: start: 20040101, end: 20060512
  7. OLANZAPINE [Suspect]
     Indication: ABNORMAL BEHAVIOUR
     Dosage: 20 MG; QD; PO
     Route: 048
     Dates: start: 20040101, end: 20060512
  8. OLANZAPINE [Suspect]
     Indication: MENTAL DISORDER
     Dosage: 20 MG; QD; PO
     Route: 048
     Dates: start: 20040101, end: 20060512
  9. BACLOFEN [Suspect]
     Dates: end: 20060512
  10. POTASSIUM CHLORIDE [Suspect]
     Indication: IMMOBILE
     Dosage: 600 MG; QD; PO
     Route: 048
     Dates: start: 20060101, end: 20060512
  11. DOMPERIDONE (DOMPERIDONE) [Suspect]
     Indication: DRUG USE FOR UNKNOWN INDICATION
     Dosage: PO
     Route: 048
     Dates: end: 20060512
  12. NADROPARIN [Concomitant]

REACTIONS (13)
  - ABNORMAL BEHAVIOUR [None]
  - DEPRESSION [None]
  - FEBRILE INFECTION [None]
  - FEMUR FRACTURE [None]
  - HYPERHIDROSIS [None]
  - HYPOTENSION [None]
  - MENTAL DISORDER [None]
  - PANCREATIC NECROSIS [None]
  - PANCREATITIS ACUTE [None]
  - SEPSIS [None]
  - SPLENIC NECROSIS [None]
  - SPLENIC VEIN THROMBOSIS [None]
  - TACHYCARDIA [None]
